FAERS Safety Report 7551273-8 (Version None)
Quarter: 2011Q2

REPORT INFORMATION
  Report Type: 
  Country: None (occurrence: None)
  Receive Date: 20110616
  Receipt Date: 20110612
  Transmission Date: 20111010
  Serious: Yes (Death, Other)
  Sender: FDA-Public Use
  Company Number: PHHY2011CZ52223

PATIENT
  Sex: Female

DRUGS (4)
  1. FENTANYL-100 [Concomitant]
  2. ANODYNE [Concomitant]
  3. NSAID'S [Concomitant]
  4. ZOMETA [Suspect]
     Dosage: UNK
     Dates: start: 20070529

REACTIONS (4)
  - DEATH [None]
  - BONE DISORDER [None]
  - METASTASES TO BONE [None]
  - OSTEONECROSIS OF JAW [None]
